FAERS Safety Report 6353988-6 (Version None)
Quarter: 2009Q3

REPORT INFORMATION
  Report Type: 
  Country: None (occurrence: None)
  Receive Date: 20090914
  Receipt Date: 20090901
  Transmission Date: 20100115
  Serious: Yes (Death, Hospitalization, Congenital Anomaly, Other)
  Sender: FDA-Public Use
  Company Number: US-ELI_LILLY_AND_COMPANY-US200909000479

PATIENT
  Sex: Female
  Weight: 3.429 kg

DRUGS (3)
  1. SARAFEM [Suspect]
     Dosage: 20 MG, DAILY (1/D)
     Route: 064
     Dates: start: 20060101, end: 20060201
  2. PRENATAL VITAMINS                  /01549301/ [Concomitant]
     Dosage: UNK, UNKNOWN
     Route: 064
  3. PROGESTERONE [Concomitant]
     Dosage: UNK, UNKNOWN
     Route: 064

REACTIONS (12)
  - BRADYCARDIA [None]
  - CARDIO-RESPIRATORY ARREST [None]
  - CARDIOMEGALY [None]
  - CHOKING [None]
  - CYANOSIS [None]
  - DRUG EXPOSURE DURING PREGNANCY [None]
  - DYSPNOEA [None]
  - HYPOTENSION [None]
  - RIGHT AORTIC ARCH [None]
  - SEPSIS [None]
  - TRUNCUS ARTERIOSUS PERSISTENT [None]
  - VENTRICULAR SEPTAL DEFECT [None]
